FAERS Safety Report 9444859 (Version 1)
Quarter: 2013Q3

REPORT INFORMATION
  Report Type: Report from Study
  Country: US (occurrence: US)
  Receive Date: 20130807
  Receipt Date: 20130807
  Transmission Date: 20140515
  Serious: Yes (Death, Hospitalization)
  Sender: FDA-Public Use
  Company Number: US-SANOFI-AVENTIS-2013SA078732

PATIENT
  Age: 67 Year
  Sex: Male
  Weight: 73.8 kg

DRUGS (23)
  1. DOCETAXEL [Suspect]
     Indication: NON-SMALL CELL LUNG CANCER
     Route: 042
     Dates: start: 20130507, end: 20130507
  2. DOCETAXEL [Suspect]
     Indication: NON-SMALL CELL LUNG CANCER
     Route: 042
     Dates: start: 20130528, end: 20130528
  3. LISINOPRIL [Concomitant]
     Indication: HYPERTENSION
     Route: 065
     Dates: start: 2008
  4. DOCUSATE SODIUM [Concomitant]
     Indication: CONSTIPATION
     Route: 065
     Dates: start: 20111214
  5. SENNA [Concomitant]
     Indication: CONSTIPATION
     Route: 065
     Dates: start: 20111214
  6. GABAPENTIN [Concomitant]
     Indication: NEUROPATHY PERIPHERAL
     Route: 065
     Dates: start: 20120413
  7. HYDROCHLOROTHIAZIDE [Concomitant]
     Indication: HYPERTENSION
     Route: 065
     Dates: start: 20120911
  8. MEMANTINE [Concomitant]
     Indication: AMNESIA
     Route: 065
     Dates: start: 201211
  9. MEMANTINE [Concomitant]
     Indication: PROPHYLAXIS
     Route: 065
     Dates: start: 201211
  10. MEGESTROL [Concomitant]
     Indication: DECREASED APPETITE
     Route: 065
     Dates: start: 20130325
  11. OXYCODONE HYDROCHLORIDE [Concomitant]
     Indication: PAIN
     Route: 065
     Dates: start: 20130412
  12. OXYCODONE [Concomitant]
     Indication: PAIN
     Route: 065
     Dates: start: 20130412
  13. MAGNESIUM CITRATE [Concomitant]
     Indication: CONSTIPATION
     Route: 065
     Dates: start: 20130507
  14. MIRALAX [Concomitant]
     Indication: CONSTIPATION
     Route: 065
     Dates: start: 20130507
  15. SALINE [Concomitant]
     Indication: FATIGUE
     Route: 065
     Dates: start: 20130604, end: 20130604
  16. SALINE [Concomitant]
     Indication: DEHYDRATION
     Route: 065
     Dates: start: 20130604, end: 20130604
  17. SALINE [Concomitant]
     Indication: FATIGUE
     Route: 065
     Dates: start: 20130605, end: 20130605
  18. SALINE [Concomitant]
     Indication: DEHYDRATION
     Route: 065
     Dates: start: 20130605, end: 20130605
  19. COMPAZINE [Concomitant]
     Indication: NAUSEA
     Route: 065
     Dates: start: 20130605, end: 20130605
  20. CEFEPIME [Concomitant]
     Indication: PRODUCT USED FOR UNKNOWN INDICATION
     Route: 065
  21. VANCOMYCIN [Concomitant]
     Indication: PRODUCT USED FOR UNKNOWN INDICATION
  22. HEPARIN [Concomitant]
     Indication: PRODUCT USED FOR UNKNOWN INDICATION
     Route: 058
  23. ZOFRAN [Concomitant]
     Indication: PRODUCT USED FOR UNKNOWN INDICATION

REACTIONS (3)
  - Bone pain [Fatal]
  - Dehydration [Recovered/Resolved]
  - Fatigue [Recovered/Resolved]
